FAERS Safety Report 20594136 (Version 3)
Quarter: 2022Q2

REPORT INFORMATION
  Report Type: Spontaneous
  Country: JP (occurrence: JP)
  Receive Date: 20220315
  Receipt Date: 20220622
  Transmission Date: 20220720
  Serious: Yes (Hospitalization, Other)
  Sender: FDA-Public Use
  Company Number: JP-MSD-M2022-07251

PATIENT
  Age: 5 Decade

DRUGS (3)
  1. KEYTRUDA [Suspect]
     Active Substance: PEMBROLIZUMAB
     Indication: Non-small cell lung cancer
     Dosage: 200 MILLIGRAM, Q3W
     Route: 041
     Dates: start: 202201, end: 202201
  2. KEYTRUDA [Suspect]
     Active Substance: PEMBROLIZUMAB
     Dosage: UNK
     Route: 041
     Dates: start: 202203
  3. PEMETREXED DISODIUM [Concomitant]
     Active Substance: PEMETREXED DISODIUM
     Indication: Non-small cell lung cancer
     Dosage: UNK
     Route: 065

REACTIONS (4)
  - Tumour pseudoprogression [Unknown]
  - Pyrexia [Recovered/Resolved]
  - Immune-mediated hepatic disorder [Recovered/Resolved]
  - Lymphocyte morphology abnormal [Recovering/Resolving]

NARRATIVE: CASE EVENT DATE: 20220101
